FAERS Safety Report 7014714-0 (Version None)
Quarter: 2010Q3

REPORT INFORMATION
  Report Type: 
  Country: None (occurrence: None)
  Receive Date: 20100927
  Receipt Date: 20100913
  Transmission Date: 20110219
  Serious: Yes (Hospitalization)
  Sender: FDA-Public Use
  Company Number: FR-ELI_LILLY_AND_COMPANY-FR201006004364

PATIENT
  Age: 74 Year
  Sex: Female

DRUGS (12)
  1. FORTEO [Suspect]
     Indication: OSTEOPOROSIS
     Dosage: 20 UG, DAILY (1/D)
     Route: 065
     Dates: start: 20090116, end: 20100506
  2. MICARDIS [Concomitant]
     Indication: HYPERTENSION
     Dosage: UNK, UNKNOWN
     Route: 065
  3. ZANIDIP [Concomitant]
     Indication: HYPERTENSION
     Dosage: UNK, UNKNOWN
     Route: 065
  4. LERCANIDIPINE [Concomitant]
     Dosage: UNK, UNKNOWN
     Route: 065
  5. TENORMIN [Concomitant]
     Dosage: UNK, UNKNOWN
     Route: 065
  6. EFFEXOR [Concomitant]
     Dosage: UNK, UNKNOWN
     Route: 065
  7. BONCEFIN [Concomitant]
     Dosage: UNK, UNKNOWN
     Route: 065
  8. NOCTAMIDE [Concomitant]
     Dosage: UNK, UNKNOWN
     Route: 065
  9. FENOFIBRATE [Concomitant]
     Indication: HYPERCHOLESTEROLAEMIA
     Dosage: UNK, UNKNOWN
     Route: 065
  10. DAFLON [Concomitant]
     Dosage: UNK, UNKNOWN
     Route: 065
  11. INFEX /00001701/ [Concomitant]
     Dosage: UNK, UNKNOWN
     Route: 065
  12. TARDYFERON [Concomitant]
     Dosage: UNK, UNKNOWN
     Route: 065

REACTIONS (1)
  - OSTEOARTHRITIS [None]
